FAERS Safety Report 17970271 (Version 1)
Quarter: 2020Q3

REPORT INFORMATION
  Report Type: Spontaneous
  Country: IT (occurrence: IT)
  Receive Date: 20200702
  Receipt Date: 20200702
  Transmission Date: 20201103
  Serious: Yes (Disabling)
  Sender: FDA-Public Use
  Company Number: IT-AMGEN-ITASP2020103841

PATIENT
  Age: 55 Year
  Sex: Female
  Weight: 102 kg

DRUGS (1)
  1. REPATHA [Suspect]
     Active Substance: EVOLOCUMAB
     Indication: PRIMARY HYPERCHOLESTEROLAEMIA
     Dosage: 140 MILLIGRAM, QWK
     Route: 058
     Dates: start: 20160630

REACTIONS (1)
  - Weight increased [Not Recovered/Not Resolved]
